FAERS Safety Report 17599883 (Version 1)
Quarter: 2020Q1

REPORT INFORMATION
  Report Type: Spontaneous
  Country: US (occurrence: US)
  Receive Date: 20200330
  Receipt Date: 20200330
  Transmission Date: 20200409
  Serious: Yes (Hospitalization)
  Sender: FDA-Public Use
  Company Number: US-COVIS PHARMA B.V.-2020COV00133

PATIENT
  Age: 3 Month
  Sex: Male
  Weight: 7.55 kg

DRUGS (6)
  1. SYNAGIS [Suspect]
     Active Substance: PALIVIZUMAB
     Indication: ANTIVIRAL PROPHYLAXIS
     Dosage: 15 MG/KG, 1X/MONTH
     Route: 030
  2. IRON [Concomitant]
     Active Substance: IRON
  3. POLY VI SOL [Concomitant]
  4. PULMICORT TURBUHALER [Suspect]
     Active Substance: BUDESONIDE
  5. VITAMIN D [Concomitant]
     Active Substance: VITAMIN D NOS
  6. OMEPRAZOLE MAGNESIUM. [Suspect]
     Active Substance: OMEPRAZOLE MAGNESIUM
     Route: 048

REACTIONS (1)
  - Respiratory syncytial virus infection [Unknown]

NARRATIVE: CASE EVENT DATE: 20200116
